FAERS Safety Report 5951099-2 (Version None)
Quarter: 2008Q4

REPORT INFORMATION
  Report Type: 
  Country: None (occurrence: None)
  Receive Date: 20081112
  Receipt Date: 20081112
  Transmission Date: 20090506
  Serious: Yes (Other)
  Sender: FDA-Public Use
  Company Number: None

PATIENT
  Sex: Female

DRUGS (1)
  1. METOPROLOL SUCCINATE [Suspect]
     Indication: TACHYCARDIA
     Dosage: 1/2 TAB. QD ORAL
     Route: 048
     Dates: start: 20080401

REACTIONS (1)
  - HEADACHE [None]
